FAERS Safety Report 8775858 (Version 2)
Quarter: 2012Q4

REPORT INFORMATION
  Report Type: 
  Country: CN (occurrence: CN)
  Receive Date: 20120910
  Receipt Date: 20120923
  Transmission Date: 20130627
  Serious: Yes (Hospitalization)
  Sender: FDA-Public Use
  Company Number: CN-ABBOTT-12P-035-0977886-00

PATIENT
  Age: 86 Year
  Sex: Male

DRUGS (2)
  1. SODIUM VALPROATE [Suspect]
     Indication: EPILEPSY
     Route: 048
     Dates: start: 20111029, end: 20111030
  2. SODIUM VALPROATE [Suspect]
     Indication: EPILEPSY
     Dates: end: 20111030

REACTIONS (3)
  - Amylase increased [Unknown]
  - Pancreatitis [Recovering/Resolving]
  - Amylase increased [Unknown]
